FAERS Safety Report 8634548 (Version 2)
Quarter: 2012Q4

REPORT INFORMATION
  Report Type: 
  Country: US (occurrence: US)
  Receive Date: 20120626
  Receipt Date: 20121010
  Transmission Date: 20130627
  Serious: Yes (Death, Hospitalization)
  Sender: FDA-Public Use
  Company Number: US-GENZYME-POMP-1002260

PATIENT

DRUGS (1)
  1. LUMIZYME [Suspect]
     Indication: GLYCOGEN STORAGE DISEASE TYPE II
     Dosage: 20 mg/kg, q2w
     Route: 042
     Dates: start: 2010

REACTIONS (2)
  - Death [Fatal]
  - Renal failure [Unknown]
